FAERS Safety Report 20852867 (Version 1)
Quarter: 2022Q2

REPORT INFORMATION
  Report Type: Spontaneous
  Country: CN (occurrence: None)
  Receive Date: 20220520
  Receipt Date: 20220520
  Transmission Date: 20220721
  Serious: Yes (Other)
  Sender: FDA-Public Use
  Company Number: CN-ROCHE-3097042

PATIENT
  Sex: Female

DRUGS (13)
  1. HERCEPTIN [Suspect]
     Active Substance: TRASTUZUMAB
     Indication: Invasive ductal breast carcinoma
     Dosage: PTH FOR 6 CYCLES
     Route: 065
     Dates: start: 2018
  2. HERCEPTIN [Suspect]
     Active Substance: TRASTUZUMAB
     Dosage: PTH FOR 6 CYCLES
     Route: 065
     Dates: start: 201908
  3. HERCEPTIN [Suspect]
     Active Substance: TRASTUZUMAB
     Dosage: PTH FOR 6 CYCLES
     Route: 065
     Dates: start: 20210928, end: 20220216
  4. HERCEPTIN [Suspect]
     Active Substance: TRASTUZUMAB
     Dosage: HPX
     Route: 065
     Dates: start: 20220509
  5. PERJETA [Suspect]
     Active Substance: PERTUZUMAB
     Indication: Invasive ductal breast carcinoma
     Dosage: PTH FOR 6 CYCLES
     Route: 065
     Dates: start: 2018
  6. PERJETA [Suspect]
     Active Substance: PERTUZUMAB
     Dosage: PTH FOR 6 CYCLES
     Route: 065
     Dates: start: 201908
  7. PERJETA [Suspect]
     Active Substance: PERTUZUMAB
     Dosage: PTH FOR 6 CYCLES
     Route: 065
     Dates: start: 20210928, end: 20220216
  8. PERJETA [Suspect]
     Active Substance: PERTUZUMAB
     Dosage: HPX
     Route: 065
     Dates: start: 20220509
  9. CAPECITABINE [Concomitant]
     Active Substance: CAPECITABINE
     Indication: Invasive ductal breast carcinoma
     Dosage: HPX
     Dates: start: 20220509
  10. PACLITAXEL [Concomitant]
     Active Substance: PACLITAXEL
     Indication: Invasive ductal breast carcinoma
     Dosage: PTH FOR 6 CYCLES
     Dates: start: 2018
  11. PACLITAXEL [Concomitant]
     Active Substance: PACLITAXEL
     Dosage: PTH FOR 6 CYCLES
     Dates: start: 20210928, end: 20220216
  12. ENDOSTATIN [Concomitant]
     Active Substance: ENDOSTATIN
     Indication: Invasive ductal breast carcinoma
  13. CISPLATIN [Concomitant]
     Active Substance: CISPLATIN
     Indication: Invasive ductal breast carcinoma

REACTIONS (6)
  - Granulocyte count decreased [Recovering/Resolving]
  - Pyrexia [Recovering/Resolving]
  - Pneumonia [Recovering/Resolving]
  - Respiratory failure [Recovering/Resolving]
  - Decreased appetite [Recovering/Resolving]
  - Asthenia [Recovering/Resolving]
